FAERS Safety Report 19737092 (Version 1)
Quarter: 2021Q3

REPORT INFORMATION
  Report Type: Spontaneous
  Country: US (occurrence: US)
  Receive Date: 20210820
  Receipt Date: 20210820
  Transmission Date: 20211014
  Serious: Yes (Hospitalization)
  Sender: FDA-Public Use
  Company Number: None

PATIENT
  Age: 69 Year
  Sex: Female

DRUGS (10)
  1. ACTEMRA [Suspect]
     Active Substance: TOCILIZUMAB
     Indication: RHEUMATOID ARTHRITIS
     Route: 058
     Dates: start: 20210702
  2. ELIQUIS [Concomitant]
     Active Substance: APIXABAN
  3. GABAPENTINE [Concomitant]
     Active Substance: GABAPENTIN
  4. DILTIAZEM. [Concomitant]
     Active Substance: DILTIAZEM
  5. INDOMETHACIN. [Concomitant]
     Active Substance: INDOMETHACIN
  6. LEFLUNOMIDE. [Concomitant]
     Active Substance: LEFLUNOMIDE
  7. PREDNSIONE [Concomitant]
     Active Substance: PREDNISONE
  8. BUDESONIDE. [Concomitant]
     Active Substance: BUDESONIDE
  9. FAMOTIDINE. [Concomitant]
     Active Substance: FAMOTIDINE
  10. NYSTAT/TRIAM [Concomitant]

REACTIONS (1)
  - Atrial fibrillation [None]

NARRATIVE: CASE EVENT DATE: 2021
